FAERS Safety Report 5523017-2 (Version None)
Quarter: 2007Q4

REPORT INFORMATION
  Report Type: 
  Country: None (occurrence: None)
  Receive Date: 20071116
  Receipt Date: 20071116
  Transmission Date: 20080405
  Serious: Yes (Other)
  Sender: FDA-Public Use
  Company Number: None

PATIENT
  Sex: Male

DRUGS (1)
  1. SEPTRA [Suspect]

REACTIONS (3)
  - FEELING HOT [None]
  - PRURITUS [None]
  - RASH MACULO-PAPULAR [None]
